FAERS Safety Report 18512711 (Version 3)
Quarter: 2021Q1

REPORT INFORMATION
  Report Type: Spontaneous
  Country: DE (occurrence: DE)
  Receive Date: 20201117
  Receipt Date: 20210129
  Transmission Date: 20210419
  Serious: Yes (Hospitalization)
  Sender: FDA-Public Use
  Company Number: DE-STALLERGENES SAS-2096027

PATIENT
  Age: 11 Year
  Sex: Male

DRUGS (4)
  1. ORALAIR [Suspect]
     Active Substance: ANTHOXANTHUM ODORATUM POLLEN\DACTYLIS GLOMERATA POLLEN\LOLIUM PERENNE POLLEN\PHLEUM PRATENSE POLLEN\POA PRATENSIS POLLEN
     Route: 060
  2. STALORAL [Suspect]
     Active Substance: ALLERGENIC EXTRACTS
     Route: 060
     Dates: start: 20200828
  3. ORALAIR [Suspect]
     Active Substance: ANTHOXANTHUM ODORATUM POLLEN\DACTYLIS GLOMERATA POLLEN\LOLIUM PERENNE POLLEN\PHLEUM PRATENSE POLLEN\POA PRATENSIS POLLEN
     Indication: SEASONAL ALLERGY
     Route: 060
     Dates: start: 20200828
  4. STALORAL BIRKE 300 I.R./ML [Suspect]
     Active Substance: ALLERGENIC EXTRACTS
     Route: 060

REACTIONS (3)
  - Nausea [Recovering/Resolving]
  - Abdominal pain [Recovering/Resolving]
  - Eosinophilic oesophagitis [Recovering/Resolving]
